FAERS Safety Report 7199145-5 (Version None)
Quarter: 2010Q4

REPORT INFORMATION
  Report Type: 
  Country: None (occurrence: None)
  Receive Date: 20101228
  Receipt Date: 20101215
  Transmission Date: 20110411
  Serious: Yes (Other)
  Sender: FDA-Public Use
  Company Number: US-CELGENEUS-163-21880-10112404

PATIENT
  Sex: Male

DRUGS (10)
  1. REVLIMID [Suspect]
     Indication: MULTIPLE MYELOMA
     Route: 048
     Dates: start: 20100801
  2. DECADRON [Concomitant]
     Route: 065
  3. LIPITOR [Concomitant]
     Route: 065
  4. FENTANYL [Concomitant]
     Route: 065
  5. DIGOXIN [Concomitant]
     Route: 065
  6. ASPIRIN [Concomitant]
     Route: 065
  7. HYDROCODONE BITARTRATE AND ACETAMINOPHEN [Concomitant]
     Dosage: 10-500 MG
     Route: 065
  8. VITAMIN D [Concomitant]
     Dosage: 1000 UNIT
     Route: 065
  9. ACTOS [Concomitant]
     Route: 065
  10. CALCIUM +D [Concomitant]
     Dosage: 600
     Route: 065

REACTIONS (2)
  - ASTHENIA [None]
  - RETINAL DISORDER [None]
